FAERS Safety Report 15515147 (Version 1)
Quarter: 2018Q4

REPORT INFORMATION
  Report Type: Other
  Country: DE (occurrence: DE)
  Receive Date: 20181017
  Receipt Date: 20181017
  Transmission Date: 20190205
  Serious: Yes (Other)
  Sender: FDA-Public Use
  Company Number: DE-MACLEODS PHARMACEUTICALS US LTD-MAC2018017439

PATIENT

DRUGS (5)
  1. METFORMIN HYDROCHLORIDE. [Suspect]
     Active Substance: METFORMIN HYDROCHLORIDE
     Indication: PRODUCT USED FOR UNKNOWN INDICATION
     Dosage: 1000 MILLIGRAM, BID, (2 X 1000 MG )
     Route: 065
  2. AMLODIPINE + VALSARTAN [Suspect]
     Active Substance: AMLODIPINE\VALSARTAN
     Indication: PRODUCT USED FOR UNKNOWN INDICATION
     Dosage: UNK, 1 X 10 MG/160 MG
     Route: 065
  3. GLICLAZIDE [Suspect]
     Active Substance: GLICLAZIDE
     Indication: PRODUCT USED FOR UNKNOWN INDICATION
     Dosage: 60 MILLIGRAM, BID, 2 X 60 MG
     Route: 065
  4. NEBIVOLOL. [Suspect]
     Active Substance: NEBIVOLOL
     Indication: PRODUCT USED FOR UNKNOWN INDICATION
     Dosage: UNK
     Route: 065
  5. L-THYROXINE SODIUM [Suspect]
     Active Substance: LEVOTHYROXINE SODIUM
     Indication: PRODUCT USED FOR UNKNOWN INDICATION
     Dosage: UNK
     Route: 065

REACTIONS (12)
  - Blood triglycerides increased [Unknown]
  - Diabetic nephropathy [Unknown]
  - Oedema peripheral [Unknown]
  - Renal tubular atrophy [Unknown]
  - Intercapillary glomerulosclerosis [Unknown]
  - Blood creatinine increased [Unknown]
  - Glycosuria [Unknown]
  - Kidney fibrosis [Unknown]
  - Blood cholesterol increased [Unknown]
  - Albumin urine present [Unknown]
  - Hypertensive nephropathy [Unknown]
  - Protein urine present [Unknown]
